FAERS Safety Report 9455840 (Version 2)
Quarter: 2013Q3

REPORT INFORMATION
  Report Type: Spontaneous
  Country: JP (occurrence: JP)
  Receive Date: 20130813
  Receipt Date: 20130918
  Transmission Date: 20140515
  Serious: Yes (Other)
  Sender: FDA-Public Use
  Company Number: JP-PFIZER INC-2013198276

PATIENT
  Age: 60 Year
  Sex: Female
  Weight: 46.6 kg

DRUGS (12)
  1. LYRICA [Suspect]
     Indication: NEURALGIA
     Dosage: 75 MG, 2X/DAY
     Route: 048
     Dates: start: 20120515, end: 20130623
  2. LYRICA [Suspect]
     Dosage: 150 MG, 2X/DAY
     Route: 048
     Dates: start: 20130624, end: 20130627
  3. LOXOPROFEN [Concomitant]
     Indication: CANCER PAIN
     Dosage: 60 MG, 3X/DAY
     Route: 048
     Dates: start: 20130322
  4. REBAMIPIDE [Concomitant]
     Indication: CANCER PAIN
     Dosage: 100 MG, 3X/DAY
     Route: 048
     Dates: start: 20130322
  5. LUPRAC [Concomitant]
     Indication: OEDEMA
     Dosage: 4 NG, AS NEEDED
     Route: 048
     Dates: start: 20130515
  6. NOVAMIN [Concomitant]
     Indication: NAUSEA
     Dosage: 5 MG, 3X/DAY
     Route: 048
     Dates: start: 20130619, end: 20130627
  7. DUROTEP MT [Concomitant]
     Indication: CANCER PAIN
     Dosage: 8.4 MG, UNK
     Route: 062
     Dates: end: 20130623
  8. DUROTEP MT [Concomitant]
     Dosage: 12.6 MG, UNK
     Route: 062
     Dates: start: 20130624, end: 20130724
  9. BFLUID [Concomitant]
     Dosage: 500 ML, UNK
     Route: 042
     Dates: start: 20130622, end: 20130626
  10. SOLDEM 6 [Concomitant]
     Dosage: 500 ML, 3X/DAY
     Route: 042
     Dates: start: 20130627, end: 20130627
  11. LASIX [Concomitant]
     Dosage: 20 MG, 1X/DAY
     Route: 042
     Dates: start: 20130627, end: 20130629
  12. FESIN [Concomitant]
     Dosage: 80 MG, 1X/DAY
     Route: 042
     Dates: start: 20130627, end: 20130701

REACTIONS (3)
  - Off label use [Unknown]
  - Blood creatine phosphokinase increased [Recovered/Resolved]
  - Renal function test abnormal [Recovered/Resolved]
